FAERS Safety Report 10648378 (Version 1)
Quarter: 2014Q4

REPORT INFORMATION
  Report Type: Report from Study
  Country: AR (occurrence: AR)
  Receive Date: 20141212
  Receipt Date: 20141212
  Transmission Date: 20150529
  Serious: Yes (Hospitalization, Other)
  Sender: FDA-Public Use
  Company Number: PHHY2014AR159079

PATIENT
  Age: 57 Year
  Sex: Female

DRUGS (2)
  1. ENALAPRIL [Concomitant]
     Active Substance: ENALAPRIL
     Indication: PRODUCT USED FOR UNKNOWN INDICATION
     Route: 065
  2. DIOVAN [Suspect]
     Active Substance: VALSARTAN
     Indication: BLOOD PRESSURE ABNORMAL
     Dosage: 160 MG (1 OR 2 DAILY)
     Route: 048

REACTIONS (8)
  - Cough [Unknown]
  - Vertigo [Unknown]
  - Fall [Unknown]
  - Dizziness [Unknown]
  - Cervical vertebral fracture [Recovered/Resolved]
  - Headache [Unknown]
  - Back pain [Unknown]
  - Intervertebral disc protrusion [Not Recovered/Not Resolved]

NARRATIVE: CASE EVENT DATE: 201402
